FAERS Safety Report 18876556 (Version 3)
Quarter: 2021Q1

REPORT INFORMATION
  Report Type: Spontaneous
  Country: PT (occurrence: PT)
  Receive Date: 20210210
  Receipt Date: 20210223
  Transmission Date: 20210420
  Serious: Yes (Hospitalization)
  Sender: FDA-Public Use
  Company Number: PT-GILEAD-2021-0516694

PATIENT
  Age: 75 Year
  Sex: Male
  Weight: 80 kg

DRUGS (17)
  1. ERITROCINA [ERYTHROMYCIN ESTOLATE] [Concomitant]
     Dosage: 1000 MG, QD
     Route: 048
     Dates: start: 20210121
  2. ALFENTANIL. [Concomitant]
     Active Substance: ALFENTANIL
     Dosage: PERFUS?O CONT?NUA
     Route: 042
     Dates: start: 20210121
  3. DEXAMETHASONE. [Concomitant]
     Active Substance: DEXAMETHASONE
     Dosage: 24 MG, QD
     Route: 042
     Dates: start: 20210120, end: 20210121
  4. ROCURONIUM BROMIDE. [Concomitant]
     Active Substance: ROCURONIUM BROMIDE
     Dosage: PERFUS?O CONT?NUA
     Route: 042
     Dates: start: 20210121
  5. SODIUM CHLORIDE + GLUCOSE [Concomitant]
     Dosage: PERFUS?O CONT?NUA
     Route: 042
     Dates: start: 20210121
  6. INSULIN HUMAN [Concomitant]
     Active Substance: INSULIN HUMAN
     Dosage: UNK
     Dates: start: 20210120
  7. ATROVENT [Concomitant]
     Active Substance: IPRATROPIUM BROMIDE
     Dosage: 1 DOSAGE FORM, QD
     Route: 048
     Dates: start: 20210120, end: 20210121
  8. GLUCONATO DE CALCIO [Concomitant]
     Dosage: 10 ML, QD
     Route: 042
     Dates: start: 20210121
  9. SALBUTAMOL [Concomitant]
     Active Substance: ALBUTEROL
     Dosage: 16 DOSAGE FORM
     Route: 045
     Dates: start: 20210120, end: 20210121
  10. ENOXAPARIN SODIUM. [Concomitant]
     Active Substance: ENOXAPARIN SODIUM
     Dosage: 40 MG, QD
     Route: 058
     Dates: start: 20210120
  11. MIDAZOLAM. [Concomitant]
     Active Substance: MIDAZOLAM
     Dosage: 150 MG, QD
     Route: 042
     Dates: start: 20210120
  12. MIDAZOLAM. [Concomitant]
     Active Substance: MIDAZOLAM
     Dosage: PERFUS?O CONT?NUA
     Route: 042
     Dates: start: 20210121
  13. VENLAFAXINE [Concomitant]
     Active Substance: VENLAFAXINE HYDROCHLORIDE
     Dosage: 75 MG, QD
     Route: 048
     Dates: start: 20210121, end: 20210121
  14. VEKLURY [Suspect]
     Active Substance: REMDESIVIR
     Indication: COVID-19 PNEUMONIA
     Dosage: D1 200 MG, D2?D5 100 MG
     Route: 042
     Dates: start: 20210121, end: 20210122
  15. NOREPINEPHRINE. [Concomitant]
     Active Substance: NOREPINEPHRINE
     Dosage: PERFUS?O CONT?NUA
     Route: 042
     Dates: start: 20210121
  16. SALBUTAMOL [Concomitant]
     Active Substance: ALBUTEROL
     Dosage: 1 DOSAGE FORM, QD
     Route: 055
     Dates: start: 20210120, end: 20210121
  17. ESOMEPRAZOLE. [Concomitant]
     Active Substance: ESOMEPRAZOLE MAGNESIUM
     Dosage: 40 MG, QD
     Route: 042
     Dates: start: 20210120

REACTIONS (1)
  - Renal impairment [Unknown]

NARRATIVE: CASE EVENT DATE: 20210122
